FAERS Safety Report 8435317-7 (Version None)
Quarter: 2012Q2

REPORT INFORMATION
  Report Type: 
  Country: None (occurrence: None)
  Receive Date: 20120614
  Receipt Date: 20120608
  Transmission Date: 20120825
  Serious: Yes (Other)
  Sender: FDA-Public Use
  Company Number: US-PFIZER INC-2011056931

PATIENT
  Sex: Male

DRUGS (3)
  1. DILANTIN-125 [Suspect]
     Dosage: UNK
  2. DILANTIN-125 [Suspect]
     Dosage: UNK
     Dates: start: 20080607
  3. DILANTIN [Suspect]
     Dosage: 100 MG, UNK
     Dates: start: 20080602

REACTIONS (1)
  - HYPERSENSITIVITY [None]
